FAERS Safety Report 19050953 (Version 4)
Quarter: 2023Q2

REPORT INFORMATION
  Report Type: Spontaneous
  Country: US (occurrence: US)
  Receive Date: 20210323
  Receipt Date: 20230408
  Transmission Date: 20230722
  Serious: Yes (Hospitalization, Other)
  Sender: FDA-Public Use
  Company Number: US-GILEAD-2021-0522270

PATIENT
  Sex: Female
  Weight: 74.83 kg

DRUGS (18)
  1. VIREAD [Suspect]
     Active Substance: TENOFOVIR DISOPROXIL FUMARATE
     Indication: HIV infection
     Dosage: UNK
     Route: 048
     Dates: start: 2005
  2. VIREAD [Suspect]
     Active Substance: TENOFOVIR DISOPROXIL FUMARATE
     Dosage: UNK
     Route: 048
     Dates: start: 2001, end: 2004
  3. TRUVADA [Suspect]
     Active Substance: EMTRICITABINE\TENOFOVIR DISOPROXIL FUMARATE
     Indication: HIV infection
     Dosage: UNK
     Route: 048
     Dates: start: 2005
  4. TRUVADA [Suspect]
     Active Substance: EMTRICITABINE\TENOFOVIR DISOPROXIL FUMARATE
     Dosage: UNK
     Route: 048
     Dates: start: 2004, end: 2015
  5. DESCOVY [Concomitant]
     Active Substance: EMTRICITABINE\TENOFOVIR ALAFENAMIDE FUMARATE
  6. COMBIVIR [Concomitant]
     Active Substance: LAMIVUDINE\ZIDOVUDINE
  7. DELSTRIGO [Concomitant]
     Active Substance: DORAVIRINE\LAMIVUDINE\TENOFOVIR DISOPROXIL FUMARATE
  8. EPIVIR [Concomitant]
     Active Substance: LAMIVUDINE
  9. NORVIR [Concomitant]
     Active Substance: RITONAVIR
  10. PREZCOBIX [Concomitant]
     Active Substance: COBICISTAT\DARUNAVIR ETHANOLATE
  11. REYATAZ [Concomitant]
     Active Substance: ATAZANAVIR SULFATE
  12. TIVICAY [Concomitant]
     Active Substance: DOLUTEGRAVIR SODIUM
  13. VIRACEPT [Concomitant]
     Active Substance: NELFINAVIR MESYLATE
  14. VIRAMUNE [Concomitant]
     Active Substance: NEVIRAPINE
  15. TEMAZEPAM [Concomitant]
     Active Substance: TEMAZEPAM
  16. TRELEGY ELLIPTA [Concomitant]
     Active Substance: FLUTICASONE FUROATE\UMECLIDINIUM BROMIDE\VILANTEROL TRIFENATATE
  17. ALBUTEROL SULFATE [Concomitant]
     Active Substance: ALBUTEROL SULFATE
  18. ATROVENT HFA [Concomitant]
     Active Substance: IPRATROPIUM BROMIDE

REACTIONS (11)
  - Osteoporosis [Not Recovered/Not Resolved]
  - Upper limb fracture [Not Recovered/Not Resolved]
  - Ankle fracture [Not Recovered/Not Resolved]
  - Osteoarthritis [Unknown]
  - Renal failure [Not Recovered/Not Resolved]
  - Emotional distress [Not Recovered/Not Resolved]
  - Anxiety [Not Recovered/Not Resolved]
  - Anhedonia [Not Recovered/Not Resolved]
  - Pain [Not Recovered/Not Resolved]
  - Fall [Unknown]
  - Gait disturbance [Unknown]

NARRATIVE: CASE EVENT DATE: 20060101
